FAERS Safety Report 8582279-8 (Version None)
Quarter: 2012Q3

REPORT INFORMATION
  Report Type: 
  Country: None (occurrence: None)
  Receive Date: 20120809
  Receipt Date: 20120203
  Transmission Date: 20120928
  Serious: Yes (Other)
  Sender: FDA-Public Use
  Company Number: PHEH2012US005225

PATIENT

DRUGS (3)
  1. VERAPAMIL [Concomitant]
     Dosage: UNK
  2. TASIGNA [Suspect]
  3. ATENOLOL [Concomitant]
     Dosage: UNK

REACTIONS (1)
  - ELECTROCARDIOGRAM QT PROLONGED [None]
